FAERS Safety Report 7114373-2 (Version None)
Quarter: 2010Q4

REPORT INFORMATION
  Report Type: 
  Country: None (occurrence: None)
  Receive Date: 20101119
  Receipt Date: 20101116
  Transmission Date: 20110411
  Serious: Yes (Other)
  Sender: FDA-Public Use
  Company Number: FR-PFIZER INC-2010080248

PATIENT
  Sex: Male
  Weight: 70 kg

DRUGS (5)
  1. XANAX [Suspect]
     Indication: ANXIETY
     Dosage: 0.50 MG, 3X/DAY
     Route: 048
     Dates: start: 19950101
  2. XANAX [Suspect]
     Indication: BIPOLAR DISORDER
  3. TERALITHE [Concomitant]
     Indication: BIPOLAR I DISORDER
     Dosage: 750MG DAILY
     Route: 048
     Dates: start: 19950101
  4. TERCIAN [Concomitant]
     Indication: BIPOLAR I DISORDER
     Dosage: 25 MG, 1X/DAY
     Route: 048
     Dates: start: 19950101
  5. IMOVANE [Concomitant]
     Indication: SLEEP DISORDER
     Dosage: 7.5 MG, 1X/DAY
     Route: 048
     Dates: start: 20080101

REACTIONS (6)
  - ABDOMINAL DISTENSION [None]
  - BRADYCARDIA [None]
  - DISTURBANCE IN ATTENTION [None]
  - LIBIDO DISORDER [None]
  - MEMORY IMPAIRMENT [None]
  - PALPITATIONS [None]
